FAERS Safety Report 15081116 (Version 2)
Quarter: 2019Q2

REPORT INFORMATION
  Report Type: Report from Study
  Country: US (occurrence: US)
  Receive Date: 20180628
  Receipt Date: 20190624
  Transmission Date: 20190711
  Serious: Yes (Death, Hospitalization, Other)
  Sender: FDA-Public Use
  Company Number: US-JAZZ-2018-US-008727

PATIENT
  Age: 9 Year
  Sex: Male

DRUGS (6)
  1. ANTITHROMBIN III [Concomitant]
     Active Substance: ANTITHROMBIN III HUMAN
     Indication: VENOOCCLUSIVE DISEASE
  2. DOPAMINE [Concomitant]
     Active Substance: DOPAMINE\DOPAMINE HYDROCHLORIDE
  3. DEFITELIO [Suspect]
     Active Substance: DEFIBROTIDE SODIUM
     Indication: VENOOCCLUSIVE DISEASE
  4. URSODEOXYCHOLIC ACID [Concomitant]
     Active Substance: URSODIOL
  5. PHYTOMENADIONE [Concomitant]
     Active Substance: PHYTONADIONE
  6. ALBUMIN [Concomitant]
     Active Substance: ALBUMIN HUMAN

REACTIONS (1)
  - Death [Fatal]
